FAERS Safety Report 4703287-0 (Version None)
Quarter: 2005Q2

REPORT INFORMATION
  Report Type: 
  Country: None (occurrence: None)
  Receive Date: 20050629
  Receipt Date: 20050318
  Transmission Date: 20051028
  Serious: Yes (Disabling, Other)
  Sender: FDA-Public Use
  Company Number: US-MERCK-0503USA03384

PATIENT
  Age: 56 Year
  Sex: Male
  Weight: 157 kg

DRUGS (3)
  1. VIOXX [Suspect]
     Indication: ARTHRITIS
     Route: 048
     Dates: start: 20020801, end: 20030501
  2. IBUPROFEN [Concomitant]
     Route: 065
  3. ACTOS [Concomitant]
     Route: 065

REACTIONS (8)
  - CARDIOVASCULAR DISORDER [None]
  - CEREBROVASCULAR ACCIDENT [None]
  - DIABETES MELLITUS [None]
  - GOUT [None]
  - HYPERTENSION [None]
  - PANCREATIC CARCINOMA [None]
  - SLEEP APNOEA SYNDROME [None]
  - SWELLING [None]
